FAERS Safety Report 9713512 (Version 2)
Quarter: 2013Q4

REPORT INFORMATION
  Report Type: Spontaneous
  Country: US (occurrence: US)
  Receive Date: 20131126
  Receipt Date: 20131230
  Transmission Date: 20140711
  Serious: No
  Sender: FDA-Public Use
  Company Number: US-PFIZER INC-2013336586

PATIENT
  Age: 47 Year
  Sex: Female

DRUGS (5)
  1. CELEBREX [Suspect]
     Dosage: UNK
  2. TRAMADOL HYDROCHLORIDE [Suspect]
     Dosage: UNK
  3. VIOXX [Suspect]
     Dosage: UNK
  4. BIAXIN [Suspect]
     Dosage: UNK
  5. HYDROCODONE [Suspect]
     Dosage: UNK

REACTIONS (1)
  - Drug hypersensitivity [Unknown]
